FAERS Safety Report 16536498 (Version 2)
Quarter: 2025Q3

REPORT INFORMATION
  Report Type: Spontaneous
  Country: EU (occurrence: EU)
  Receive Date: 20190706
  Receipt Date: 20250724
  Transmission Date: 20251020
  Serious: Yes (Other)
  Sender: AUROBINDO
  Company Number: EU-AUROBINDO-AUR-APL-2019-038226

PATIENT
  Age: 61 Year
  Weight: 66.5 kg

DRUGS (3)
  1. VORICONAZOLE [Suspect]
     Active Substance: VORICONAZOLE
     Indication: Scedosporium infection
     Dosage: 400 MILLIGRAM, ONCE A DAY (200 MG TWICE DAILY, FOLLOWING A LOADING DOSE OF 6 MG/KG EVERY 12 HOURS FO
     Route: 048
  2. TERBINAFINE [Concomitant]
     Active Substance: TERBINAFINE
     Indication: Scedosporium infection
     Route: 065
  3. MILTEFOSINE [Concomitant]
     Active Substance: MILTEFOSINE
     Indication: Scedosporium infection
     Dosage: 150 MILLIGRAM, ONCE A DAY (50 MG, EVERY 8 HOURS)
     Route: 065

REACTIONS (2)
  - Drug level below therapeutic [Recovering/Resolving]
  - Drug ineffective [Recovering/Resolving]
